FAERS Safety Report 18378067 (Version 5)
Quarter: 2021Q1

REPORT INFORMATION
  Report Type: Report from Study
  Country: DE (occurrence: DE)
  Receive Date: 20201013
  Receipt Date: 20210316
  Transmission Date: 20210419
  Serious: Yes (Hospitalization)
  Sender: FDA-Public Use
  Company Number: DE-CELGENEUS-DEU-20201002208

PATIENT
  Age: 59 Year
  Sex: Female
  Weight: 66 kg

DRUGS (11)
  1. GEMCITABINE. [Suspect]
     Active Substance: GEMCITABINE
     Dosage: 1420.9 MILLIGRAM
     Route: 041
     Dates: start: 20201005
  2. CLEXANE [Concomitant]
     Active Substance: ENOXAPARIN SODIUM
     Indication: ANTICOAGULANT THERAPY
     Dosage: 40 MILLIGRAM
     Route: 058
     Dates: start: 20201008, end: 20201009
  3. AZACITIDINE. [Suspect]
     Active Substance: AZACITIDINE
     Indication: DUCTAL ADENOCARCINOMA OF PANCREAS
     Dosage: 53.7 MILLIGRAM
     Route: 058
     Dates: start: 20200720
  4. ABRAXANE [Suspect]
     Active Substance: PACLITAXEL
     Indication: DUCTAL ADENOCARCINOMA OF PANCREAS
     Dosage: 223.6 MILLIGRAM
     Route: 041
     Dates: start: 20200727
  5. MACROGOL [Concomitant]
     Active Substance: POLYETHYLENE GLYCOLS
     Indication: CONSTIPATION
     Route: 048
     Dates: start: 20200717
  6. ZOFRAN [Concomitant]
     Active Substance: ONDANSETRON HYDROCHLORIDE
     Indication: NAUSEA
     Dosage: 16 MILLIGRAM
     Route: 048
     Dates: start: 20200724
  7. ABRAXANE [Suspect]
     Active Substance: PACLITAXEL
     Dosage: 177.6 MILLIGRAM
     Route: 041
     Dates: start: 20201005
  8. GEMCITABINE. [Suspect]
     Active Substance: GEMCITABINE
     Indication: DUCTAL ADENOCARCINOMA OF PANCREAS
     Dosage: 1789.1 MILLIGRAM
     Route: 041
     Dates: start: 20200727
  9. ZOPICLON [Concomitant]
     Active Substance: ZOPICLONE
     Indication: INSOMNIA
     Dosage: 3.75 MILLIGRAM
     Route: 048
     Dates: start: 20201008, end: 20201009
  10. AZACITIDINE. [Suspect]
     Active Substance: AZACITIDINE
     Dosage: 53.7 MILLIGRAM
     Route: 058
     Dates: start: 20200818
  11. METOCLOPRAMIDE. [Concomitant]
     Active Substance: METOCLOPRAMIDE
     Indication: NAUSEA
     Route: 048
     Dates: start: 20200724

REACTIONS (1)
  - Mucosal inflammation [Recovered/Resolved]

NARRATIVE: CASE EVENT DATE: 20201008
